FAERS Safety Report 11876203 (Version 1)
Quarter: 2015Q4

REPORT INFORMATION
  Report Type: Spontaneous
  Country: FR (occurrence: FR)
  Receive Date: 20151229
  Receipt Date: 20151229
  Transmission Date: 20160305
  Serious: Yes (Hospitalization, Other)
  Sender: FDA-Public Use
  Company Number: FR-BRISTOL-MYERS SQUIBB COMPANY-BMS-2015-088599

PATIENT
  Age: 59 Year
  Sex: Female
  Weight: 69 kg

DRUGS (4)
  1. EMEND [Concomitant]
     Active Substance: APREPITANT
     Indication: PRODUCT USED FOR UNKNOWN INDICATION
     Route: 065
  2. DETICENE [Suspect]
     Active Substance: DACARBAZINE
     Indication: MALIGNANT MELANOMA
     Dosage: 250 MG/M2, UNK
     Route: 042
     Dates: start: 20150120, end: 20150123
  3. ZOPHREN                            /00955301/ [Concomitant]
     Active Substance: ONDANSETRON
     Indication: PRODUCT USED FOR UNKNOWN INDICATION
     Route: 065
  4. YERVOY [Suspect]
     Active Substance: IPILIMUMAB
     Indication: MALIGNANT MELANOMA
     Dosage: 3 MG/KG, Q3WK
     Route: 042
     Dates: start: 20150323, end: 20150526

REACTIONS (6)
  - Ocular hyperaemia [Recovering/Resolving]
  - Optic neuropathy [Recovering/Resolving]
  - Orbital oedema [Recovering/Resolving]
  - Visual acuity reduced [Recovering/Resolving]
  - Eye inflammation [Recovering/Resolving]
  - Exophthalmos [Recovering/Resolving]

NARRATIVE: CASE EVENT DATE: 20150613
